FAERS Safety Report 6926867-0 (Version None)
Quarter: 2010Q3

REPORT INFORMATION
  Report Type: 
  Country: None (occurrence: None)
  Receive Date: 20100816
  Receipt Date: 20100629
  Transmission Date: 20110219
  Serious: No
  Sender: FDA-Public Use
  Company Number: US-ABBOTT-10P-163-0654383-00

PATIENT
  Sex: Female
  Weight: 90.8 kg

DRUGS (8)
  1. SIMCOR [Suspect]
     Indication: LOW DENSITY LIPOPROTEIN INCREASED
     Dates: start: 20100628
  2. TYLENOL PM [Concomitant]
     Indication: PRODUCT USED FOR UNKNOWN INDICATION
  3. THYROXIN [Concomitant]
     Indication: PRODUCT USED FOR UNKNOWN INDICATION
  4. AMITRIPTYLINE HYDROCHLORIDE [Concomitant]
     Indication: PRODUCT USED FOR UNKNOWN INDICATION
  5. PROTONIX [Concomitant]
     Indication: PRODUCT USED FOR UNKNOWN INDICATION
  6. GEODON [Concomitant]
     Indication: PRODUCT USED FOR UNKNOWN INDICATION
  7. MORPHINE [Concomitant]
     Indication: PRODUCT USED FOR UNKNOWN INDICATION
  8. ROBAXIN [Concomitant]
     Indication: PRODUCT USED FOR UNKNOWN INDICATION

REACTIONS (1)
  - ABDOMINAL PAIN UPPER [None]
